FAERS Safety Report 5285715-8 (Version None)
Quarter: 2007Q1

REPORT INFORMATION
  Report Type: 
  Country: None (occurrence: None)
  Receive Date: 20070126
  Receipt Date: 20061120
  Transmission Date: 20070707
  Serious: No
  Sender: FDA-Public Use
  Company Number: 2006-BP-13717BP

PATIENT
  Age: 5 Decade
  Sex: Male

DRUGS (1)
  1. APTIVUS/RITONAVIR CAPSULES (TIPRANAVIR) [Suspect]
     Indication: HIV INFECTION
     Dosage: (SEE TEXT 250 MG/100MG),PO
     Route: 048

REACTIONS (1)
  - DRUG INEFFECTIVE [None]
